FAERS Safety Report 6767320-7 (Version None)
Quarter: 2010Q2

REPORT INFORMATION
  Report Type: 
  Country: None (occurrence: None)
  Receive Date: 20100611
  Receipt Date: 20100611
  Transmission Date: 20101027
  Serious: Yes (Life-Threatening, Hospitalization, Disabling, Other)
  Sender: FDA-Public Use
  Company Number: None

PATIENT
  Age: 59 Year
  Sex: Female
  Weight: 54.4316 kg

DRUGS (3)
  1. RESTYLANE [Suspect]
     Indication: SKIN COSMETIC PROCEDURE
     Dosage: -Q6MOS ID
     Dates: start: 20060726, end: 20081027
  2. BOTOX [Suspect]
     Indication: SKIN COSMETIC PROCEDURE
     Dosage: - Q6MOS ID
     Dates: start: 20060726, end: 20081027
  3. JUVIDERM [Suspect]

REACTIONS (9)
  - CARDIAC FAILURE [None]
  - CARDIOGENIC SHOCK [None]
  - CLUBBING [None]
  - DERMATOMYOSITIS [None]
  - DYSHIDROSIS [None]
  - GAIT DISTURBANCE [None]
  - HEART TRANSPLANT [None]
  - MUSCULAR WEAKNESS [None]
  - TREATMENT FAILURE [None]
